FAERS Safety Report 10184455 (Version 1)
Quarter: 2014Q2

REPORT INFORMATION
  Report Type: Report from Study
  Country: FR (occurrence: FR)
  Receive Date: 20140521
  Receipt Date: 20140521
  Transmission Date: 20141212
  Serious: Yes (Hospitalization)
  Sender: FDA-Public Use
  Company Number: FR-ROCHE-1403054

PATIENT
  Sex: Female

DRUGS (8)
  1. RITUXIMAB [Suspect]
     Indication: RHEUMATOID ARTHRITIS
     Dosage: DAY 1 AND DAY 15
     Route: 042
     Dates: start: 20061130
  2. HYDROXYCHLOROQUINE [Concomitant]
  3. SALAZOPYRINE [Concomitant]
  4. METHOTREXATE [Concomitant]
  5. ENBREL [Concomitant]
  6. HUMIRA [Concomitant]
  7. ARAVA [Concomitant]
  8. CORTANCYL [Concomitant]
     Route: 065

REACTIONS (10)
  - Arthritis infective [Recovered/Resolved]
  - Femur fracture [Recovered/Resolved]
  - Ear infection [Recovered/Resolved]
  - Lymphopenia [Unknown]
  - Dental care [Recovered/Resolved]
  - Tooth extraction [Recovered/Resolved]
  - Sinusitis [Recovered/Resolved]
  - Nasal polyps [Recovered/Resolved]
  - Hypoacusis [Unknown]
  - Headache [Unknown]
